FAERS Safety Report 4624135-3 (Version None)
Quarter: 2005Q1

REPORT INFORMATION
  Report Type: 
  Country: None (occurrence: None)
  Receive Date: 20050331
  Receipt Date: 20050218
  Transmission Date: 20050727
  Serious: Yes (Other)
  Sender: FDA-Public Use
  Company Number: PHEH2005US02252

PATIENT
  Sex: Male

DRUGS (5)
  1. ZOMETA [Suspect]
     Indication: MULTIPLE MYELOMA
     Dosage: 4 MG, QMO
     Route: 042
     Dates: start: 20030114, end: 20030203
  2. DEXAMETHASONE [Concomitant]
     Dosage: Q PROTOCOL
  3. AREDIA [Suspect]
     Indication: MULTIPLE MYELOMA
     Dosage: 90 MG, ONCE/SINGLE
     Dates: start: 20021212
  4. CELEXA [Concomitant]
  5. REMERON [Concomitant]

REACTIONS (4)
  - ACTINOMYCOSIS [None]
  - ANAEMIA VITAMIN B12 DEFICIENCY [None]
  - BONE MARROW TRANSPLANT [None]
  - OSTEONECROSIS [None]
